FAERS Safety Report 9925440 (Version 1)
Quarter: 2014Q1

REPORT INFORMATION
  Report Type: Spontaneous
  Country: US (occurrence: None)
  Receive Date: 20140225
  Receipt Date: 20140225
  Transmission Date: 20141002
  Serious: Yes (Other)
  Sender: FDA-Public Use
  Company Number: None

PATIENT
  Age: 14 Year
  Sex: Female

DRUGS (1)
  1. NORDITROPIN FLEXPRO [Suspect]
     Indication: GONADAL DYSGENESIS
     Route: 058
     Dates: start: 2001

REACTIONS (1)
  - Growth accelerated [None]
